FAERS Safety Report 13233593 (Version 2)
Quarter: 2017Q1

REPORT INFORMATION
  Report Type: Report from Study
  Country: US (occurrence: US)
  Receive Date: 20170215
  Receipt Date: 20170316
  Transmission Date: 20170428
  Serious: Yes (Other)
  Sender: FDA-Public Use
  Company Number: US-ROCHE-1892851

PATIENT
  Sex: Female

DRUGS (7)
  1. LASIX [Concomitant]
     Active Substance: FUROSEMIDE
  2. TRAMADOL. [Concomitant]
     Active Substance: TRAMADOL
  3. ENALAPRIL [Concomitant]
     Active Substance: ENALAPRIL
  4. LUCENTIS [Suspect]
     Active Substance: RANIBIZUMAB
     Indication: DIABETIC RETINAL OEDEMA
     Route: 050
     Dates: start: 20161001, end: 20161121
  5. HUMALOG [Concomitant]
     Active Substance: INSULIN LISPRO
  6. LUCENTIS [Suspect]
     Active Substance: RANIBIZUMAB
     Indication: DIABETIC RETINOPATHY
     Dosage: ONGOING: NO
     Route: 050
  7. LABETALOL [Concomitant]
     Active Substance: LABETALOL\LABETALOL HYDROCHLORIDE

REACTIONS (2)
  - Seizure [Recovered/Resolved]
  - Blindness [Unknown]
